FAERS Safety Report 15986343 (Version 1)
Quarter: 2019Q1

REPORT INFORMATION
  Report Type: Report from Study
  Country: US (occurrence: US)
  Receive Date: 20190220
  Receipt Date: 20190220
  Transmission Date: 20190418
  Serious: Yes (Death, Hospitalization)
  Sender: FDA-Public Use
  Company Number: US-EXELIXIS-CABO-19018528

PATIENT
  Age: 57 Year
  Sex: Male

DRUGS (8)
  1. AMBIEN [Concomitant]
     Active Substance: ZOLPIDEM TARTRATE
  2. LEXAPRO [Concomitant]
     Active Substance: ESCITALOPRAM OXALATE
  3. LORAZEPAM. [Concomitant]
     Active Substance: LORAZEPAM
  4. MULTIVITAMINS, COMBINATIONS [Concomitant]
     Active Substance: VITAMINS
  5. CABOMETYX [Suspect]
     Active Substance: CABOZANTINIB S-MALATE
     Indication: RENAL CANCER
     Dosage: 60 MG, QD
     Route: 048
  6. LAMICTAL [Concomitant]
     Active Substance: LAMOTRIGINE
  7. LIPITOR [Concomitant]
     Active Substance: ATORVASTATIN CALCIUM
  8. TYLENOL [Concomitant]
     Active Substance: ACETAMINOPHEN

REACTIONS (2)
  - Femur fracture [Unknown]
  - Death [Fatal]

NARRATIVE: CASE EVENT DATE: 20190207
